FAERS Safety Report 17044133 (Version 1)
Quarter: 2019Q4

REPORT INFORMATION
  Report Type: Spontaneous
  Country: US (occurrence: US)
  Receive Date: 20191116
  Receipt Date: 20191116
  Transmission Date: 20200122
  Serious: Yes (Disabling)
  Sender: FDA-Public Use
  Company Number: None

PATIENT
  Age: 26 Year
  Sex: Female
  Weight: 81 kg

DRUGS (1)
  1. EXTRA STRENGTH PAIN RELIEF PM [Suspect]
     Active Substance: ACETAMINOPHEN\DIPHENHYDRAMINE HYDROCHLORIDE
     Indication: HEADACHE
     Dosage: ?          QUANTITY:24 CAPSULE(S);?
     Route: 048
     Dates: start: 20191019, end: 20191112

REACTIONS (6)
  - Tinnitus [None]
  - Ear pain [None]
  - Vision blurred [None]
  - Visual acuity reduced [None]
  - Ear congestion [None]
  - Deafness [None]

NARRATIVE: CASE EVENT DATE: 20191112
